FAERS Safety Report 7326390-8 (Version None)
Quarter: 2011Q1

REPORT INFORMATION
  Report Type: 
  Country: None (occurrence: None)
  Receive Date: 20110218
  Receipt Date: 20110204
  Transmission Date: 20110831
  Serious: Yes (Hospitalization)
  Sender: FDA-Public Use
  Company Number: 025277

PATIENT
  Sex: Male

DRUGS (3)
  1. CIMZIA [Suspect]
     Indication: CROHN'S DISEASE
     Dosage: (SUBCUTANEOUS), (400 MG 1X/2 WEEKS SUBCUTANEOUS)
     Route: 058
     Dates: start: 20100501
  2. ENTOCORT EC [Concomitant]
  3. METHOTREXATE [Concomitant]

REACTIONS (5)
  - BLOOD UREA INCREASED [None]
  - HAEMOGLOBIN DECREASED [None]
  - WEIGHT DECREASED [None]
  - NAUSEA [None]
  - HAEMATOCRIT DECREASED [None]
